FAERS Safety Report 17919170 (Version 1)
Quarter: 2020Q2

REPORT INFORMATION
  Report Type: Spontaneous
  Country: DE (occurrence: DE)
  Receive Date: 20200619
  Receipt Date: 20200619
  Transmission Date: 20200714
  Serious: Yes (Other)
  Sender: FDA-Public Use
  Company Number: DE-UCBSA-2020023321

PATIENT

DRUGS (5)
  1. NEUPRO [Suspect]
     Active Substance: ROTIGOTINE
     Indication: PRODUCT USED FOR UNKNOWN INDICATION
     Dosage: 8 MG STRENGTH
  2. NEUPRO [Suspect]
     Active Substance: ROTIGOTINE
     Indication: RESTLESS LEGS SYNDROME
     Dosage: UNK
  3. RESTEX [Concomitant]
     Active Substance: BENSERAZIDE\LEVODOPA
     Indication: PRODUCT USED FOR UNKNOWN INDICATION
     Dosage: UNK
  4. NEUPRO [Suspect]
     Active Substance: ROTIGOTINE
     Indication: PARKINSON^S DISEASE
     Dosage: TWICE THE DOSE OF 8 MG STRENGTH
  5. RESTEX [Concomitant]
     Active Substance: BENSERAZIDE\LEVODOPA
     Indication: PRODUCT USED FOR UNKNOWN INDICATION
     Dosage: UNK

REACTIONS (11)
  - Skin irritation [Unknown]
  - Adverse drug reaction [Unknown]
  - Somnolence [Unknown]
  - Fatigue [Unknown]
  - Pruritus [Unknown]
  - Intentional product misuse [Unknown]
  - Hypersensitivity [Unknown]
  - Product adhesion issue [Unknown]
  - Insomnia [Unknown]
  - Drug ineffective [Unknown]
  - Suicidal ideation [Unknown]
